FAERS Safety Report 6595968-1 (Version None)
Quarter: 2010Q1

REPORT INFORMATION
  Report Type: 
  Country: None (occurrence: None)
  Receive Date: 20100219
  Receipt Date: 20100219
  Transmission Date: 20100710
  Serious: Yes (Hospitalization)
  Sender: FDA-Public Use
  Company Number: None

PATIENT
  Sex: Male

DRUGS (3)
  1. IXABEPILONE START DATE: 04/21/09 [Suspect]
     Indication: COLON CANCER
     Dosage: 12.5 DAY 1, 8 + 15
     Dates: start: 20090421
  2. IXABEPILONE START DATE: 04/21/09 [Suspect]
     Indication: METASTASES TO LIVER
     Dosage: 12.5 DAY 1, 8 + 15
     Dates: start: 20090421
  3. SUNITINIB START DATE: 04/28/09 [Suspect]
     Dosage: 37.5 PO DAILY
     Route: 048
     Dates: start: 20090428

REACTIONS (1)
  - INTESTINAL OBSTRUCTION [None]
